FAERS Safety Report 4759451-8 (Version None)
Quarter: 2005Q3

REPORT INFORMATION
  Report Type: 
  Country: None (occurrence: None)
  Receive Date: 20050831
  Receipt Date: 20050823
  Transmission Date: 20060218
  Serious: Yes (Hospitalization)
  Sender: FDA-Public Use
  Company Number: 207874

PATIENT
  Age: 63 Year
  Sex: Male
  Weight: 65.8 kg

DRUGS (14)
  1. AVASTIN [Suspect]
     Indication: METASTATIC RENAL CELL CARCINOMA
     Dosage: 10 MG/KG, Q2W, INTRAVENOUS
     Route: 042
     Dates: start: 20040617
  2. ERLOTINIB OR PLACEBO (ERLOTINIB OR PLACEBO) TABLET [Suspect]
     Indication: METASTATIC RENAL CELL CARCINOMA
     Dosage: SEE IMAGE
     Route: 048
     Dates: start: 20040617, end: 20040704
  3. ERLOTINIB OR PLACEBO (ERLOTINIB OR PLACEBO) TABLET [Suspect]
     Indication: METASTATIC RENAL CELL CARCINOMA
     Dosage: SEE IMAGE
     Route: 048
     Dates: start: 20040704
  4. FLOMAX [Concomitant]
  5. IBUPROFEN [Concomitant]
  6. PRILOSEC [Concomitant]
  7. VITAMIN D (CHOLECALCIFEROL) [Concomitant]
  8. COAL TAR OINTMENT (COAL TAR) [Concomitant]
  9. LIPITOR [Concomitant]
  10. CLINDAMYCIN (CLINDAMYCIN) [Concomitant]
  11. MULTI-VITAMINS [Concomitant]
  12. GLUCOSAMINE/CHONDROITIN (GLUCOSAMINE, CHONDROITIN SULFATE) [Concomitant]
  13. ASPIRIN [Concomitant]
  14. ACETAMINOPHEN [Concomitant]

REACTIONS (40)
  - ALANINE AMINOTRANSFERASE INCREASED [None]
  - ASPARTATE AMINOTRANSFERASE INCREASED [None]
  - BLOOD ALBUMIN DECREASED [None]
  - BLOOD ALBUMIN INCREASED [None]
  - BLOOD ALKALINE PHOSPHATASE INCREASED [None]
  - BLOOD CREATININE INCREASED [None]
  - BLOOD GLUCOSE INCREASED [None]
  - BLOOD UREA INCREASED [None]
  - BLOOD URIC ACID DECREASED [None]
  - CHILLS [None]
  - COUGH [None]
  - DEHYDRATION [None]
  - DIASTOLIC DYSFUNCTION [None]
  - DILATATION VENTRICULAR [None]
  - EJECTION FRACTION DECREASED [None]
  - FAECES DISCOLOURED [None]
  - FATIGUE [None]
  - HAEMATOCRIT DECREASED [None]
  - HAEMOGLOBIN DECREASED [None]
  - HIATUS HERNIA [None]
  - HYPERMETABOLISM [None]
  - NEUTROPHIL COUNT INCREASED [None]
  - NEUTROPHIL PERCENTAGE INCREASED [None]
  - ORAL INTAKE REDUCED [None]
  - OXYGEN SATURATION DECREASED [None]
  - PALPITATIONS [None]
  - PHARYNGOLARYNGEAL PAIN [None]
  - PLATELET COUNT INCREASED [None]
  - PROTEIN URINE PRESENT [None]
  - PYREXIA [None]
  - RASH [None]
  - SUPRAVENTRICULAR EXTRASYSTOLES [None]
  - SUPRAVENTRICULAR TACHYCARDIA [None]
  - TRICUSPID VALVE INCOMPETENCE [None]
  - UREA URINE INCREASED [None]
  - URINE CALCIUM INCREASED [None]
  - URINE URIC ACID INCREASED [None]
  - VENTRICULAR DYSFUNCTION [None]
  - VENTRICULAR HYPOKINESIA [None]
  - WHITE BLOOD CELL COUNT INCREASED [None]
